FAERS Safety Report 23842296 (Version 1)
Quarter: 2024Q2

REPORT INFORMATION
  Report Type: Spontaneous
  Country: MX (occurrence: MX)
  Receive Date: 20240510
  Receipt Date: 20240510
  Transmission Date: 20240715
  Serious: Yes (Other)
  Sender: FDA-Public Use
  Company Number: MX-TEVA-VS-3194635

PATIENT

DRUGS (2)
  1. BENDAMUSTINE [Suspect]
     Active Substance: BENDAMUSTINE
     Route: 065
  2. BENDAMUSTINE [Suspect]
     Active Substance: BENDAMUSTINE
     Route: 065

REACTIONS (4)
  - Renal injury [Unknown]
  - Oedema [Unknown]
  - Pneumonitis [Unknown]
  - Rash [Unknown]
